FAERS Safety Report 4382688-7 (Version None)
Quarter: 2004Q2

REPORT INFORMATION
  Report Type: 
  Country: None (occurrence: None)
  Receive Date: 20040617
  Receipt Date: 20040608
  Transmission Date: 20050107
  Serious: Yes (Hospitalization)
  Sender: FDA-Public Use
  Company Number: JP-JNJFOC-20040602223

PATIENT
  Age: 78 Year
  Sex: Male

DRUGS (2)
  1. OXYBUTYNIN CHLORIDE [Suspect]
     Indication: POLLAKIURIA
     Dosage: SEE IMAGE
     Route: 048
     Dates: end: 20040531
  2. OXYBUTYNIN CHLORIDE [Suspect]
     Indication: POLLAKIURIA
     Dosage: SEE IMAGE
     Route: 048
     Dates: start: 20040409

REACTIONS (14)
  - ALANINE AMINOTRANSFERASE ABNORMAL [None]
  - ALANINE AMINOTRANSFERASE INCREASED [None]
  - ANOREXIA [None]
  - ASPARTATE AMINOTRANSFERASE INCREASED [None]
  - BLOOD ALKALINE PHOSPHATASE INCREASED [None]
  - BLOOD CREATININE INCREASED [None]
  - BLOOD UREA INCREASED [None]
  - C-REACTIVE PROTEIN INCREASED [None]
  - CONSTIPATION [None]
  - FATIGUE [None]
  - PROTEIN URINE PRESENT [None]
  - URINARY OCCULT BLOOD POSITIVE [None]
  - URINARY TRACT INFECTION [None]
  - WEIGHT DECREASED [None]
